FAERS Safety Report 6944364-3 (Version None)
Quarter: 2010Q3

REPORT INFORMATION
  Report Type: 
  Country: None (occurrence: None)
  Receive Date: 20100827
  Receipt Date: 20100825
  Transmission Date: 20110219
  Serious: Yes (Other)
  Sender: FDA-Public Use
  Company Number: US-ASTRAZENECA-2008UW01164

PATIENT
  Age: 18963 Day
  Sex: Female
  Weight: 67.1 kg

DRUGS (32)
  1. SEROQUEL [Suspect]
     Indication: ANXIETY
     Dosage: 25 MG TO 50 MG
     Route: 048
     Dates: start: 20000101, end: 20041201
  2. SEROQUEL [Suspect]
     Indication: DEPRESSION
     Dosage: 25 MG TO 50 MG
     Route: 048
     Dates: start: 20000101, end: 20041201
  3. SEROQUEL [Suspect]
     Indication: SCHIZOPHRENIA
     Dosage: 25 MG TO 50 MG
     Route: 048
     Dates: start: 20000101, end: 20041201
  4. SEROQUEL [Suspect]
     Indication: HALLUCINATION
     Dosage: 25 MG TO 50 MG
     Route: 048
     Dates: start: 20000101, end: 20041201
  5. SEROQUEL [Suspect]
     Dosage: 25MG - 800MG
     Route: 048
     Dates: start: 20030304, end: 20040415
  6. SEROQUEL [Suspect]
     Dosage: 25MG - 800MG
     Route: 048
     Dates: start: 20030304, end: 20040415
  7. SEROQUEL [Suspect]
     Dosage: 25MG - 800MG
     Route: 048
     Dates: start: 20030304, end: 20040415
  8. SEROQUEL [Suspect]
     Dosage: 25MG - 800MG
     Route: 048
     Dates: start: 20030304, end: 20040415
  9. PROTONIX [Concomitant]
     Indication: GASTROOESOPHAGEAL REFLUX DISEASE
     Route: 048
  10. PAXIL CR [Concomitant]
     Dosage: 12.5MG-25MG
  11. ABILIFY [Concomitant]
     Dates: start: 20000101
  12. ABILIFY [Concomitant]
     Dosage: 10 MG - 40 MG
     Dates: end: 20040330
  13. RISPERDAL [Concomitant]
     Indication: HALLUCINATION, AUDITORY
     Dates: start: 20000101
  14. RISPERDAL [Concomitant]
     Indication: DEPRESSION
     Dates: start: 20000101
  15. RISPERDAL [Concomitant]
     Indication: ANXIETY
     Dates: start: 20000101
  16. RISPERDAL [Concomitant]
     Indication: SCHIZOPHRENIA
     Dates: start: 20000101
  17. RISPERDAL [Concomitant]
     Dates: start: 20040401
  18. RISPERDAL [Concomitant]
     Dates: start: 20040401
  19. RISPERDAL [Concomitant]
     Dates: start: 20040401
  20. RISPERDAL [Concomitant]
     Dates: start: 20040401
  21. RISPERDAL [Concomitant]
     Dosage: 1 MG - 6 MG
     Route: 048
     Dates: end: 20040415
  22. RISPERDAL [Concomitant]
     Dosage: 1 MG - 6 MG
     Route: 048
     Dates: end: 20040415
  23. RISPERDAL [Concomitant]
     Dosage: 1 MG - 6 MG
     Route: 048
     Dates: end: 20040415
  24. RISPERDAL [Concomitant]
     Dosage: 1 MG - 6 MG
     Route: 048
     Dates: end: 20040415
  25. DESYREL [Concomitant]
     Dosage: 25MG - 200MG
  26. REMERON [Concomitant]
     Dosage: 15 MG - 45 MG
  27. ZOLOFT [Concomitant]
     Dosage: 50MG - 200MG
  28. LEXAPRO [Concomitant]
     Dosage: 10 MG - 40 MG
  29. ZYPREXA [Concomitant]
     Indication: HALLUCINATION
     Dates: start: 20000113
  30. ZYPREXA [Concomitant]
     Indication: ANXIETY
     Dates: start: 20000113
  31. ZYPREXA [Concomitant]
     Indication: SCHIZOPHRENIA
     Dates: start: 20000113
  32. THORAZINE [Concomitant]
     Dates: start: 20010101, end: 20070101

REACTIONS (2)
  - DIABETES MELLITUS [None]
  - DIABETIC RETINOPATHY [None]
